FAERS Safety Report 7262680-5 (Version None)
Quarter: 2011Q1

REPORT INFORMATION
  Report Type: 
  Country: None (occurrence: None)
  Receive Date: 20110130
  Receipt Date: 20100924
  Transmission Date: 20110831
  Serious: No
  Sender: FDA-Public Use
  Company Number: US-ABBOTT-10P-163-0673631-00

PATIENT
  Age: 22 Year
  Sex: Female

DRUGS (4)
  1. EC PROCHLORPERAZINE [Concomitant]
     Indication: NAUSEA
  2. IMODIUM [Concomitant]
     Indication: DIARRHOEA
  3. HUMIRA [Suspect]
     Indication: CROHN'S DISEASE
  4. LOESTREN 24 F PILL [Concomitant]
     Indication: CONTRACEPTION

REACTIONS (1)
  - PRURITUS [None]
